FAERS Safety Report 7541121-4 (Version None)
Quarter: 2011Q2

REPORT INFORMATION
  Report Type: 
  Country: None (occurrence: None)
  Receive Date: 20110610
  Receipt Date: 20110423
  Transmission Date: 20111010
  Serious: Yes (Hospitalization)
  Sender: FDA-Public Use
  Company Number: PL-GENENTECH-319504

PATIENT
  Age: 50 Year
  Sex: Female

DRUGS (5)
  1. DAUNORUBICIN HCL [Suspect]
     Indication: PRIMARY MEDIASTINAL LARGE B-CELL LYMPHOMA
     Dosage: UNK
     Route: 065
  2. ONCOVIN [Suspect]
     Indication: PRIMARY MEDIASTINAL LARGE B-CELL LYMPHOMA
     Dosage: UNK
     Route: 065
  3. CYCLOPHOSPHAMIDE [Suspect]
     Indication: PRIMARY MEDIASTINAL LARGE B-CELL LYMPHOMA
     Dosage: UNK
     Route: 065
  4. RITUXIMAB [Suspect]
     Indication: PRIMARY MEDIASTINAL LARGE B-CELL LYMPHOMA
     Dosage: UNK
     Route: 065
  5. PREDNISONE [Suspect]
     Indication: PRIMARY MEDIASTINAL LARGE B-CELL LYMPHOMA
     Dosage: UNK
     Route: 065

REACTIONS (13)
  - CHEST PAIN [None]
  - BONE DENSITY INCREASED [None]
  - DYSURIA [None]
  - TETANY [None]
  - PYREXIA [None]
  - DIARRHOEA [None]
  - ORAL MUCOSA EROSION [None]
  - DYSPNOEA [None]
  - FUNGAL INFECTION [None]
  - SECONDARY HYPERTHYROIDISM [None]
  - AGRANULOCYTOSIS [None]
  - COUGH [None]
  - LIVER SCAN ABNORMAL [None]
